FAERS Safety Report 24083145 (Version 1)
Quarter: 2024Q3

REPORT INFORMATION
  Report Type: Spontaneous
  Country: ZA (occurrence: None)
  Receive Date: 20240712
  Receipt Date: 20240712
  Transmission Date: 20241016
  Serious: Yes (Hospitalization, Other)
  Sender: ASTRAZENECA
  Company Number: 2024A154277

PATIENT
  Age: 86 Year
  Sex: Male

DRUGS (9)
  1. DAPAGLIFLOZIN PROPANEDIOL [Suspect]
     Active Substance: DAPAGLIFLOZIN PROPANEDIOL
     Indication: Diabetes mellitus
     Dosage: 10.0MG UNKNOWN
     Route: 048
  2. PRAMIPEXOLE DIHYDROCHLORIDE [Concomitant]
     Active Substance: PRAMIPEXOLE DIHYDROCHLORIDE
     Indication: Parkinson^s disease
     Dosage: 0.25MG UNKNOWN
     Route: 048
  3. OXYMIST [Concomitant]
     Dosage: 0.5MG UNKNOWN
     Route: 048
  4. DICLOFENAC SODIUM [Concomitant]
     Active Substance: DICLOFENAC\DICLOFENAC SODIUM
     Indication: Pain
     Dosage: 50.0MG UNKNOWN
     Route: 048
  5. CELEBREX [Concomitant]
     Active Substance: CELECOXIB
     Indication: Pain
     Dosage: 200.0MG UNKNOWN
     Route: 048
  6. LANSOPRAZOLE [Concomitant]
     Active Substance: LANSOPRAZOLE
     Indication: Ulcer
     Dosage: 30.0MG UNKNOWN
     Route: 048
  7. ILIADIN [Concomitant]
     Dosage: 0.5MG UNKNOWN
     Route: 045
  8. REPIVATE [Concomitant]
     Dosage: 0.1% UNKNOWN
     Route: 061
  9. ALLERGEX [Concomitant]
     Indication: Hypersensitivity
     Dosage: 4.0MG UNKNOWN
     Route: 048

REACTIONS (2)
  - Sepsis [Unknown]
  - Pneumonia [Unknown]
